FAERS Safety Report 16933914 (Version 7)
Quarter: 2021Q1

REPORT INFORMATION
  Report Type: Spontaneous
  Country: JP (occurrence: JP)
  Receive Date: 20191018
  Receipt Date: 20210326
  Transmission Date: 20210419
  Serious: Yes (Hospitalization, Other)
  Sender: FDA-Public Use
  Company Number: JP-GLAXOSMITHKLINE-JP2019JPN187159

PATIENT
  Age: 31 Year
  Sex: Female
  Weight: 57 kg

DRUGS (5)
  1. CYMBALTA [Interacting]
     Active Substance: DULOXETINE HYDROCHLORIDE
     Dosage: 60 MG, 1D
     Route: 048
     Dates: end: 20190319
  2. LAMICTAL [Suspect]
     Active Substance: LAMOTRIGINE
     Indication: BIPOLAR DISORDER
     Dosage: UNK UNK, 1D
     Route: 048
  3. LAMICTAL [Interacting]
     Active Substance: LAMOTRIGINE
     Dosage: 300 MG, QD
     Route: 048
     Dates: end: 20190319
  4. LAMICTAL [Interacting]
     Active Substance: LAMOTRIGINE
     Dosage: 5000 MG, SINGLE
     Route: 048
     Dates: start: 20190319, end: 20190319
  5. CYMBALTA [Interacting]
     Active Substance: DULOXETINE HYDROCHLORIDE
     Dosage: 1200 MG, SINGLE
     Route: 048
     Dates: start: 20190319, end: 20190319

REACTIONS (23)
  - Restlessness [Recovered/Resolved]
  - Tachycardia [Recovered/Resolved]
  - Pneumonia aspiration [Recovered/Resolved]
  - Drug interaction [Unknown]
  - Altered state of consciousness [Recovered/Resolved]
  - Tachypnoea [Recovered/Resolved]
  - Clonus [Recovered/Resolved]
  - Tongue biting [Unknown]
  - General physical health deterioration [Unknown]
  - Suicide attempt [Unknown]
  - Tremor [Recovered/Resolved]
  - Tonic posturing [Recovered/Resolved]
  - Intentional overdose [Unknown]
  - Hyperhidrosis [Recovered/Resolved]
  - Mydriasis [Recovered/Resolved]
  - Hyperlactacidaemia [Unknown]
  - Vomiting [Unknown]
  - Serotonin syndrome [Recovered/Resolved]
  - Metabolic acidosis [Recovered/Resolved]
  - Hyperreflexia [Recovered/Resolved]
  - Sympathicotonia [Recovered/Resolved]
  - Pyrexia [Unknown]
  - Mouth haemorrhage [Unknown]

NARRATIVE: CASE EVENT DATE: 201903
